FAERS Safety Report 9551682 (Version 2)
Quarter: 2016Q4

REPORT INFORMATION
  Report Type: Spontaneous
  Country: JP (occurrence: JP)
  Receive Date: 20130925
  Receipt Date: 20161214
  Transmission Date: 20170207
  Serious: Yes (Other)
  Sender: FDA-Public Use
  Company Number: JP-JNJFOC-20130911940

PATIENT

DRUGS (2)
  1. REMIFENTANIL HYDROCHLORIDE [Suspect]
     Active Substance: REMIFENTANIL HYDROCHLORIDE
     Indication: ANAESTHESIA
     Route: 042
  2. FENTNAYL CITRATE [Suspect]
     Active Substance: FENTANYL CITRATE
     Indication: ANAESTHESIA
     Route: 065

REACTIONS (4)
  - Dyskinesia [Recovering/Resolving]
  - Muscular weakness [Recovering/Resolving]
  - Bulbar palsy [Recovering/Resolving]
  - Eyelid ptosis [Recovering/Resolving]
